FAERS Safety Report 7966965-6 (Version None)
Quarter: 2011Q4

REPORT INFORMATION
  Report Type: 
  Country: None (occurrence: None)
  Receive Date: 20111207
  Receipt Date: 20111207
  Transmission Date: 20120403
  Serious: Yes (Hospitalization)
  Sender: FDA-Public Use
  Company Number: None

PATIENT
  Sex: Female

DRUGS (1)
  1. COPAXONE [Suspect]
     Dosage: 20MG DAILY SUB Q
     Route: 058
     Dates: start: 20110401, end: 20111202

REACTIONS (2)
  - INJECTION SITE PRURITUS [None]
  - ANAPHYLACTIC REACTION [None]
